FAERS Safety Report 7163005-6 (Version None)
Quarter: 2010Q4

REPORT INFORMATION
  Report Type: 
  Country: None (occurrence: None)
  Receive Date: 20101215
  Receipt Date: 20100209
  Transmission Date: 20110411
  Serious: Yes (Other)
  Sender: FDA-Public Use
  Company Number: US-PFIZER INC-2010017728

PATIENT
  Sex: Female
  Weight: 86.168 kg

DRUGS (2)
  1. LYRICA [Suspect]
     Indication: NEURALGIA
     Dosage: 50 MG, 1X/DAY
     Route: 048
     Dates: start: 20100203, end: 20100205
  2. VITAMINS [Concomitant]
     Dosage: UNK

REACTIONS (7)
  - DRY MOUTH [None]
  - DYSPNOEA [None]
  - ERYTHEMA [None]
  - MUSCLE TWITCHING [None]
  - PAIN [None]
  - PRURITUS [None]
  - SWELLING FACE [None]
